FAERS Safety Report 5897046-3 (Version None)
Quarter: 2008Q3

REPORT INFORMATION
  Report Type: 
  Country: None (occurrence: None)
  Receive Date: 20080924
  Receipt Date: 20080919
  Transmission Date: 20090109
  Serious: Yes (Other)
  Sender: FDA-Public Use
  Company Number: GB-MERCK-0808GBR00092

PATIENT
  Age: 44 Year
  Sex: Male
  Weight: 112 kg

DRUGS (12)
  1. JANUVIA [Suspect]
     Indication: TYPE 2 DIABETES MELLITUS
     Route: 048
     Dates: start: 20071016, end: 20080521
  2. JANUVIA [Suspect]
     Indication: OBESITY
     Route: 048
     Dates: start: 20071016, end: 20080521
  3. ROSUVASTATIN CALCIUM [Concomitant]
     Indication: BLOOD CHOLESTEROL ABNORMAL
     Route: 065
     Dates: start: 20071016
  4. RIMONABANT [Concomitant]
     Indication: OBESITY
     Route: 065
     Dates: start: 20080201
  5. RIMONABANT [Concomitant]
     Indication: TYPE 2 DIABETES MELLITUS
     Route: 065
     Dates: start: 20080201
  6. VILDAGLIPTIN [Concomitant]
     Indication: TYPE 2 DIABETES MELLITUS
     Route: 065
     Dates: start: 20080611, end: 20080101
  7. VILDAGLIPTIN [Concomitant]
     Route: 065
     Dates: start: 20080908
  8. VILDAGLIPTIN [Concomitant]
     Indication: OBESITY
     Route: 065
     Dates: start: 20080611, end: 20080101
  9. VILDAGLIPTIN [Concomitant]
     Route: 065
     Dates: start: 20080908
  10. METFORMIN [Concomitant]
     Indication: TYPE 2 DIABETES MELLITUS
     Route: 065
     Dates: start: 20050101
  11. LISINOPRIL [Concomitant]
     Indication: HYPERTENSION
     Route: 065
     Dates: start: 20061031
  12. ASPIRIN [Concomitant]
     Route: 065
     Dates: start: 20070531

REACTIONS (3)
  - AGGRESSION [None]
  - NEUROSIS [None]
  - SUICIDE ATTEMPT [None]
